FAERS Safety Report 22620436 (Version 4)
Quarter: 2023Q4

REPORT INFORMATION
  Report Type: Spontaneous
  Country: US (occurrence: US)
  Receive Date: 20230620
  Receipt Date: 20231129
  Transmission Date: 20240110
  Serious: Yes (Other)
  Sender: FDA-Public Use
  Company Number: US-Blueprint Medicines Corporation-1208

PATIENT
  Sex: Male

DRUGS (2)
  1. AVAPRITINIB [Suspect]
     Active Substance: AVAPRITINIB
     Indication: Systemic mastocytosis
     Route: 065
     Dates: start: 20230614
  2. AVAPRITINIB [Suspect]
     Active Substance: AVAPRITINIB
     Route: 065
     Dates: start: 20230614

REACTIONS (8)
  - Biopsy bone [Unknown]
  - Sleep disorder [Unknown]
  - Pain [Unknown]
  - Infection [Unknown]
  - Hunger [Unknown]
  - Cardiac disorder [Unknown]
  - Swelling [Unknown]
  - Fatigue [Recovering/Resolving]
